FAERS Safety Report 6681040-9 (Version None)
Quarter: 2010Q2

REPORT INFORMATION
  Report Type: 
  Country: None (occurrence: None)
  Receive Date: 20100412
  Receipt Date: 20100401
  Transmission Date: 20101027
  Serious: Yes (Other)
  Sender: FDA-Public Use
  Company Number: 1000013035

PATIENT
  Sex: Male

DRUGS (5)
  1. ESCITALOPRAM [Suspect]
     Dosage: 10 MG (10 MG,  1  IN 1 D),ORAL
     Route: 048
  2. ESCITALOPRAM [Suspect]
     Dosage: 20 MG (20 MG, 1 IN 1 D), ORAL
     Route: 048
  3. ESCITALOPRAM [Suspect]
     Dosage: 15 MG (15 MG,  1 IN 1 D),ORAL
     Route: 048
  4. ATARAX [Concomitant]
  5. MOPRAL [Concomitant]

REACTIONS (2)
  - MENTAL DISORDER [None]
  - TREMOR [None]
